FAERS Safety Report 8937263 (Version 4)
Quarter: 2013Q2

REPORT INFORMATION
  Report Type: Spontaneous
  Country: JP (occurrence: JP)
  Receive Date: 20121203
  Receipt Date: 20130614
  Transmission Date: 20140414
  Serious: Yes (Life-Threatening, Hospitalization, Disabling, Other)
  Sender: FDA-Public Use
  Company Number: PHHY2012JP110047

PATIENT
  Age: 65 Year
  Sex: Male
  Weight: 59 kg

DRUGS (7)
  1. GLIVEC [Suspect]
     Indication: CHRONIC MYELOID LEUKAEMIA
     Dosage: 300 MG, DAILY
     Route: 048
     Dates: start: 2009, end: 20121101
  2. ZYVOX [Suspect]
  3. SENNOSIDE [Concomitant]
     Indication: CONSTIPATION
     Dosage: 48 MG, UNK
     Route: 048
  4. PARIET [Concomitant]
     Indication: GASTRIC ULCER
     Dosage: 10 MG, UNK
     Route: 048
  5. NU-LOTAN [Concomitant]
     Indication: HYPERTENSION
     Dosage: 50 MG, UNK
     Route: 048
  6. MOHRUS [Concomitant]
     Indication: OSTEOARTHRITIS
     Dosage: 40 MG, TD
     Route: 065
  7. MS ONSHIPPU [Concomitant]
     Indication: OSTEOARTHRITIS
     Dosage: 20 MG, TD
     Route: 065

REACTIONS (14)
  - Abscess [Recovered/Resolved]
  - Pyomyositis [Not Recovered/Not Resolved]
  - Muscle swelling [Unknown]
  - Erythema [Unknown]
  - Pain [Unknown]
  - Groin pain [Unknown]
  - Pyrexia [Unknown]
  - Inflammation [Unknown]
  - Colon cancer stage I [Recovering/Resolving]
  - Neoplasm recurrence [Unknown]
  - Second primary malignancy [Unknown]
  - Tubulointerstitial nephritis [Recovered/Resolved with Sequelae]
  - Platelet count decreased [Recovered/Resolved]
  - Renal failure acute [Recovered/Resolved with Sequelae]
